FAERS Safety Report 12878792 (Version 1)
Quarter: 2016Q4

REPORT INFORMATION
  Report Type: Other
  Country: US (occurrence: GB)
  Receive Date: 20161024
  Receipt Date: 20161024
  Transmission Date: 20170207
  Serious: Yes (Other)
  Sender: FDA-Public Use
  Company Number: GB-AIRGAS USA-1058701

PATIENT
  Age: 29 Year
  Sex: Female

DRUGS (1)
  1. NITROUS OXIDE. [Suspect]
     Active Substance: NITROUS OXIDE
     Indication: ANALGESIC THERAPY

REACTIONS (4)
  - Myelopathy [None]
  - Neuropathy peripheral [None]
  - Subacute combined cord degeneration [Recovering/Resolving]
  - Fall [None]
